FAERS Safety Report 4869719-2 (Version None)
Quarter: 2005Q4

REPORT INFORMATION
  Report Type: 
  Country: None (occurrence: None)
  Receive Date: 20051223
  Receipt Date: 20051219
  Transmission Date: 20060501
  Serious: Yes (Life-Threatening)
  Sender: FDA-Public Use
  Company Number: 200510886BNE

PATIENT
  Age: 44 Year
  Sex: Male

DRUGS (1)
  1. ASPIRIN [Suspect]
     Indication: TOOTHACHE
     Dates: start: 20051126

REACTIONS (3)
  - GASTROINTESTINAL HAEMORRHAGE [None]
  - HYPOTENSION [None]
  - TACHYCARDIA [None]
